FAERS Safety Report 8825187 (Version 5)
Quarter: 2012Q4

REPORT INFORMATION
  Report Type: 
  Country: JP (occurrence: JP)
  Receive Date: 20121004
  Receipt Date: 20121029
  Transmission Date: 20130627
  Serious: Yes (Death, Hospitalization)
  Sender: FDA-Public Use
  Company Number: JP-GLAXOSMITHKLINE-B0834595A

PATIENT
  Sex: Male

DRUGS (4)
  1. AVOLVE [Suspect]
     Indication: BENIGN PROSTATIC HYPERPLASIA
     Dosage: .5MG Per day
     Route: 048
     Dates: end: 20120928
  2. ARICEPT [Suspect]
     Indication: DEMENTIA ALZHEIMER^S TYPE
     Dosage: 5MG Per day
     Route: 048
     Dates: end: 20121009
  3. TAMSLON [Suspect]
     Indication: BENIGN PROSTATIC HYPERPLASIA
     Dosage: .2MG Per day
     Route: 048
     Dates: end: 20121004
  4. FUROSEMIDE [Concomitant]
     Indication: OEDEMA
     Route: 048

REACTIONS (7)
  - Generalised oedema [Fatal]
  - Renal impairment [Unknown]
  - Renal failure acute [Unknown]
  - Decreased appetite [Unknown]
  - Hepatic function abnormal [Unknown]
  - Blood creatinine increased [Unknown]
  - Blood urea increased [Unknown]
